FAERS Safety Report 7102927-9 (Version None)
Quarter: 2010Q4

REPORT INFORMATION
  Report Type: 
  Country: None (occurrence: None)
  Receive Date: 20101115
  Receipt Date: 20090714
  Transmission Date: 20110411
  Serious: No
  Sender: FDA-Public Use
  Company Number: US-KINGPHARMUSA00001-K200900848

PATIENT
  Sex: Male

DRUGS (1)
  1. AVINZA [Suspect]
     Indication: BACK PAIN
     Dosage: 30 MG, SINGLE
     Route: 048
     Dates: start: 20090701, end: 20090701

REACTIONS (2)
  - DRUG DIVERSION [None]
  - DRUG INEFFECTIVE [None]
